FAERS Safety Report 8120006-9 (Version None)
Quarter: 2012Q1

REPORT INFORMATION
  Report Type: 
  Country: None (occurrence: None)
  Receive Date: 20120207
  Receipt Date: 20120127
  Transmission Date: 20120608
  Serious: Yes (Other)
  Sender: FDA-Public Use
  Company Number: BR-NOVOPROD-343899

PATIENT
  Age: 27 Year
  Sex: Female
  Weight: 70 kg

DRUGS (2)
  1. SUMAX                              /01044801/ [Concomitant]
     Indication: MIGRAINE
     Dosage: 1 TABLET ONLY WHEN SHE HAS MIGRAINE
     Route: 048
     Dates: start: 20020127
  2. VICTOZA [Suspect]
     Indication: TYPE 2 DIABETES MELLITUS
     Dosage: 0.6 MG, QD
     Route: 058
     Dates: start: 20120109, end: 20120127

REACTIONS (1)
  - HEART RATE INCREASED [None]
